FAERS Safety Report 16733483 (Version 1)
Quarter: 2019Q3

REPORT INFORMATION
  Report Type: Spontaneous
  Country: CA (occurrence: CA)
  Receive Date: 20190823
  Receipt Date: 20190823
  Transmission Date: 20191005
  Serious: Yes (Death)
  Sender: FDA-Public Use
  Company Number: CA-ASTRAZENECA-2019SF19426

PATIENT
  Age: 66 Year
  Sex: Female

DRUGS (8)
  1. ZOPICLONE [Concomitant]
     Active Substance: ZOPICLONE
  2. ONDANSETRON [Concomitant]
     Active Substance: ONDANSETRON
  3. MONTELUKAST [Concomitant]
     Active Substance: MONTELUKAST SODIUM
  4. DEXAMETHASONE. [Concomitant]
     Active Substance: DEXAMETHASONE
  5. GRASTOFIL [Concomitant]
     Active Substance: FILGRASTIM
  6. LYNPARZA [Suspect]
     Active Substance: OLAPARIB
     Route: 048
  7. METONIA [Concomitant]
     Active Substance: METOCLOPRAMIDE
  8. NEXIUM [Concomitant]
     Active Substance: ESOMEPRAZOLE MAGNESIUM

REACTIONS (1)
  - Death [Fatal]
